FAERS Safety Report 10515328 (Version 3)
Quarter: 2014Q4

REPORT INFORMATION
  Report Type: Not Available
  Country: IT (occurrence: IT)
  Receive Date: 20141014
  Receipt Date: 20141118
  Transmission Date: 20150528
  Serious: Yes (Hospitalization)
  Sender: FDA-Public Use
  Company Number: IT-BEH-2014045590

PATIENT
  Age: 5 Year
  Sex: Female
  Weight: 26 kg

DRUGS (1)
  1. PRIVIGEN [Suspect]
     Active Substance: HUMAN IMMUNOGLOBULIN G
     Indication: THROMBOCYTOPENIC PURPURA
     Route: 042
     Dates: start: 20140612, end: 20140612

REACTIONS (3)
  - Tremor [Unknown]
  - Body temperature increased [Unknown]
  - Chills [Unknown]

NARRATIVE: CASE EVENT DATE: 20140612
